FAERS Safety Report 10306834 (Version 2)
Quarter: 2014Q3

REPORT INFORMATION
  Report Type: Spontaneous
  Country: IN (occurrence: IN)
  Receive Date: 20140715
  Receipt Date: 20140731
  Transmission Date: 20150326
  Serious: Yes (Other)
  Sender: FDA-Public Use
  Company Number: ALCN2014IN004047

PATIENT
  Age: 10 Year
  Sex: Female

DRUGS (2)
  1. DORZOLAMIDE [Suspect]
     Active Substance: DORZOLAMIDE
     Dosage: 1 DF, UNK
     Route: 047
  2. BRIMONIDINE [Suspect]
     Active Substance: BRIMONIDINE\BRIMONIDINE TARTRATE
     Indication: INTRAOCULAR PRESSURE INCREASED
     Dosage: 1 DF, UNK
     Route: 047

REACTIONS (2)
  - Drug ineffective [Recovered/Resolved]
  - Intraocular pressure increased [Recovered/Resolved]
